FAERS Safety Report 23085274 (Version 1)
Quarter: 2023Q4

REPORT INFORMATION
  Report Type: Spontaneous
  Country: US (occurrence: US)
  Receive Date: 20231019
  Receipt Date: 20231019
  Transmission Date: 20240109
  Serious: Yes (Life-Threatening, Hospitalization)
  Sender: FDA-Public Use
  Company Number: US-JNJFOC-20231031204

PATIENT
  Age: 22 Year
  Sex: Female

DRUGS (1)
  1. IBUPROFEN [Suspect]
     Active Substance: IBUPROFEN
     Indication: Product used for unknown indication
     Dosage: INGESTION OF APPROXIMATELY 650 TABLETS OF 200 MG IBUPROFEN OR APPROXIMATELY 2300 MG/KG IDEAL BODY WE
     Route: 048

REACTIONS (13)
  - Unresponsive to stimuli [Recovered/Resolved]
  - Coma scale abnormal [Unknown]
  - Osmolar gap increased [Unknown]
  - Anion gap increased [Unknown]
  - Blood electrolytes abnormal [Unknown]
  - Intentional overdose [Unknown]
  - Metabolic acidosis [Recovered/Resolved]
  - Depressed level of consciousness [Recovered/Resolved]
  - Blood potassium decreased [Unknown]
  - Blood potassium increased [Unknown]
  - Mental status changes [Unknown]
  - Acute kidney injury [Recovered/Resolved]
  - Distributive shock [Recovered/Resolved]
